FAERS Safety Report 15951391 (Version 1)
Quarter: 2019Q1

REPORT INFORMATION
  Report Type: Spontaneous
  Country: CN (occurrence: CN)
  Receive Date: 20190211
  Receipt Date: 20190211
  Transmission Date: 20190417
  Serious: Yes (Other)
  Sender: FDA-Public Use
  Company Number: CN-PFIZER INC-2019051570

PATIENT
  Age: 81 Year
  Sex: Female
  Weight: 65 kg

DRUGS (1)
  1. SOLU-MEDROL [Suspect]
     Active Substance: METHYLPREDNISOLONE SODIUM SUCCINATE
     Indication: WHEEZING
     Dosage: 40 MG, ONCE A DAY
     Route: 041
     Dates: start: 20190128, end: 20190201

REACTIONS (2)
  - Diabetes mellitus [Not Recovered/Not Resolved]
  - Pulmonary fibrosis [Not Recovered/Not Resolved]

NARRATIVE: CASE EVENT DATE: 20190128
